FAERS Safety Report 9664173 (Version 1)
Quarter: 2013Q4

REPORT INFORMATION
  Report Type: Spontaneous
  Country: US (occurrence: US)
  Receive Date: 20131101
  Receipt Date: 20131101
  Transmission Date: 20140711
  Serious: Yes (Other)
  Sender: FDA-Public Use
  Company Number: US-SHIRE-ALL1-2013-07372

PATIENT
  Age: 38 Year
  Sex: Male

DRUGS (3)
  1. VPRIV [Suspect]
     Indication: GAUCHER^S DISEASE
     Dosage: 60 IU/KG, 1X/2WKS
     Route: 041
  2. VPRIV [Suspect]
     Dosage: 30 IU/KG, 1X/2WKS
     Route: 041
     Dates: start: 200910
  3. PROTONIX [Concomitant]
     Indication: GASTROOESOPHAGEAL REFLUX DISEASE
     Dosage: 20 MG, 2X/DAY:BID
     Route: 065
     Dates: start: 2009

REACTIONS (4)
  - Chronic myeloid leukaemia [Not Recovered/Not Resolved]
  - Splenomegaly [Unknown]
  - Condition aggravated [Unknown]
  - White blood cell count increased [Unknown]
